FAERS Safety Report 4444609-8 (Version None)
Quarter: 2004Q3

REPORT INFORMATION
  Report Type: 
  Country: None (occurrence: None)
  Receive Date: 20040907
  Receipt Date: 20040218
  Transmission Date: 20050211
  Serious: Yes (Other)
  Sender: FDA-Public Use
  Company Number: 30018810-R04A132-1

PATIENT
  Age: 37 Year
  Sex: Female
  Weight: 47 kg

DRUGS (1)
  1. DIANEAL [Suspect]
     Indication: PERITONEAL DIALYSIS
     Dosage: 1.5%, UNK, IP
     Route: 033
     Dates: start: 20040110

REACTIONS (3)
  - ABDOMINAL PAIN [None]
  - CHEST PAIN [None]
  - INFUSION SITE PAIN [None]
